FAERS Safety Report 7424098-1 (Version None)
Quarter: 2011Q2

REPORT INFORMATION
  Report Type: 
  Country: None (occurrence: None)
  Receive Date: 20110419
  Receipt Date: 20110411
  Transmission Date: 20111010
  Serious: Yes (Other)
  Sender: FDA-Public Use
  Company Number: PHHY2011IT31752

PATIENT
  Age: 70 Year
  Sex: Female

DRUGS (6)
  1. HONEY [Interacting]
     Indication: CONSTIPATION
     Dosage: 3 SPOONS, QD
  2. ALOE BARBADENSIS [Interacting]
     Indication: CONSTIPATION
     Dosage: 3 SPOONS, QD
  3. ALCOHOL [Interacting]
     Indication: CONSTIPATION
     Dosage: 3 SPOONS, QD
  4. HERBAL LIQUID HOME-MADE PREPARATION [Interacting]
     Indication: CONSTIPATION
     Dosage: 3 SPOONS, QD
  5. WARFARIN [Suspect]
     Dosage: 5 MG, QW
  6. WARFARIN [Interacting]
     Dosage: 6.25 MG, QW

REACTIONS (3)
  - DRUG INTERACTION [None]
  - THERAPEUTIC RESPONSE DECREASED [None]
  - INTERNATIONAL NORMALISED RATIO DECREASED [None]
